FAERS Safety Report 7983187-3 (Version None)
Quarter: 2011Q4

REPORT INFORMATION
  Report Type: 
  Country: None (occurrence: None)
  Receive Date: 20111215
  Receipt Date: 20111202
  Transmission Date: 20120403
  Serious: Yes (Death, Life-Threatening, Hospitalization, Other)
  Sender: FDA-Public Use
  Company Number: US-ACTELION-A-NJ2011-52897

PATIENT

DRUGS (2)
  1. TRACLEER [Suspect]
     Indication: PULMONARY ARTERIAL HYPERTENSION
     Dosage: 2 MG/KG, BID
     Route: 048
     Dates: end: 20111124
  2. TRACLEER [Suspect]
     Dosage: 1 MG/KG, BID
     Route: 048

REACTIONS (9)
  - ASPARTATE AMINOTRANSFERASE INCREASED [None]
  - PARAINFLUENZAE VIRUS INFECTION [None]
  - MECHANICAL VENTILATION [None]
  - BLOOD ALKALINE PHOSPHATASE INCREASED [None]
  - BLOOD BILIRUBIN INCREASED [None]
  - RESPIRATORY FAILURE [None]
  - PULMONARY HYPERTENSION [None]
  - ALANINE AMINOTRANSFERASE INCREASED [None]
  - LIVER FUNCTION TEST ABNORMAL [None]
